FAERS Safety Report 9435900 (Version 1)
Quarter: 2013Q3

REPORT INFORMATION
  Report Type: Report from Study
  Country: US (occurrence: US)
  Receive Date: 20130801
  Receipt Date: 20130801
  Transmission Date: 20140515
  Serious: Yes (Other)
  Sender: FDA-Public Use
  Company Number: US-ABBOTT-13P-163-1124049-00

PATIENT
  Age: 47 Year
  Sex: Female

DRUGS (4)
  1. LUPRON DEPOT [Suspect]
     Indication: UTERINE LEIOMYOMA
     Dates: end: 201304
  2. LUPRON DEPOT [Suspect]
     Indication: VAGINAL HAEMORRHAGE
  3. LUPRON DEPOT [Suspect]
     Indication: BLOOD COUNT ABNORMAL
  4. IRON [Concomitant]
     Indication: PRODUCT USED FOR UNKNOWN INDICATION

REACTIONS (4)
  - Hysterectomy [Recovered/Resolved]
  - Salpingectomy [Recovered/Resolved]
  - Haemorrhage [Recovered/Resolved]
  - Vaginal haemorrhage [Recovered/Resolved]
